FAERS Safety Report 7525870-X (Version None)
Quarter: 2011Q2

REPORT INFORMATION
  Report Type: 
  Country: None (occurrence: None)
  Receive Date: 20110606
  Receipt Date: 20110526
  Transmission Date: 20111010
  Serious: Yes (Other)
  Sender: FDA-Public Use
  Company Number: A0929778A

PATIENT
  Sex: Female
  Weight: 46.4 kg

DRUGS (11)
  1. CHONDROITIN [Concomitant]
  2. DIOVAN [Concomitant]
     Indication: BLOOD PRESSURE
     Dosage: 80MG PER DAY
  3. ADVAIR DISKUS 100/50 [Suspect]
     Indication: BRONCHIECTASIS
     Dosage: 1PUFF TWICE PER DAY
     Route: 055
     Dates: start: 20100501
  4. GLUCOSAMINE [Concomitant]
  5. DILTIAZEM [Concomitant]
     Indication: BLOOD PRESSURE
     Dosage: 300MG PER DAY
  6. VITAMIN D [Concomitant]
  7. LEVOTHYROXINE SODIUM [Concomitant]
     Indication: THYROID DISORDER
     Dosage: .025MG PER DAY
  8. ASPIRIN [Concomitant]
     Dosage: 81MG PER DAY
  9. DOMPERIDONE [Concomitant]
     Dosage: 10MG SEE DOSAGE TEXT
  10. CALCIUM CARBONATE [Concomitant]
  11. CENTRUM MULTI VITAMINS [Concomitant]

REACTIONS (4)
  - GINGIVAL INFECTION [None]
  - CANDIDIASIS [None]
  - PNEUMONIA [None]
  - DYSPHONIA [None]
